FAERS Safety Report 11103291 (Version 1)
Quarter: 2015Q2

REPORT INFORMATION
  Report Type: Spontaneous
  Country: IR (occurrence: IR)
  Receive Date: 20150511
  Receipt Date: 20150511
  Transmission Date: 20150821
  Serious: Yes (Death, Hospitalization, Other)
  Sender: FDA-Public Use
  Company Number: IR-MYLANLABS-2015M1015397

PATIENT

DRUGS (3)
  1. METHYLPREDNISOLONE. [Suspect]
     Active Substance: METHYLPREDNISOLONE
     Dosage: PULSE THERAPY
     Route: 065
  2. PREDNISOLONE. [Suspect]
     Active Substance: PREDNISOLONE
     Route: 048
  3. CICLOSPORIN [Concomitant]
     Active Substance: CYCLOSPORINE
     Route: 048

REACTIONS (4)
  - Fusarium infection [Unknown]
  - Respiratory failure [Unknown]
  - Bronchopulmonary aspergillosis [Unknown]
  - Sepsis [Fatal]
